FAERS Safety Report 8583554-3 (Version None)
Quarter: 2012Q3

REPORT INFORMATION
  Report Type: 
  Country: None (occurrence: None)
  Receive Date: 20120809
  Receipt Date: 20120718
  Transmission Date: 20120928
  Serious: No
  Sender: FDA-Public Use
  Company Number: US-ASTRAZENECA-2012SE50796

PATIENT
  Age: 59 Year
  Sex: Female
  Weight: 51.7 kg

DRUGS (5)
  1. ZOMETA [Concomitant]
  2. CITALOPRAM HYDROBROMIDE [Concomitant]
  3. GABAPENTIN [Concomitant]
  4. PROVIGIL [Concomitant]
  5. FASLODEX [Suspect]
     Indication: BREAST CANCER METASTATIC
     Route: 030
     Dates: start: 20110101

REACTIONS (3)
  - SKIN ODOUR ABNORMAL [None]
  - INJECTION SITE PAIN [None]
  - HYPERTRICHOSIS [None]
